FAERS Safety Report 9607254 (Version 1)
Quarter: 2013Q4

REPORT INFORMATION
  Report Type: Report from Study
  Country: CA (occurrence: CA)
  Receive Date: 20131009
  Receipt Date: 20131009
  Transmission Date: 20140711
  Serious: Yes (Hospitalization)
  Sender: FDA-Public Use
  Company Number: CA-ROCHE-1285276

PATIENT
  Age: 77 Year
  Sex: Male

DRUGS (9)
  1. BEVACIZUMAB [Suspect]
     Indication: PRODUCT USED FOR UNKNOWN INDICATION
     Dosage: THERAPY DURATION:  101.0 DAY(S)
     Route: 042
  2. ATIVAN [Suspect]
     Indication: PRODUCT USED FOR UNKNOWN INDICATION
     Dosage: THERAPY DURATION: 10.DAYS
     Route: 065
  3. DILAUDID [Suspect]
     Indication: PRODUCT USED FOR UNKNOWN INDICATION
     Route: 065
  4. LYRICA [Suspect]
     Indication: PRODUCT USED FOR UNKNOWN INDICATION
     Route: 065
  5. COLACE [Concomitant]
     Route: 065
  6. FENTANYL [Concomitant]
     Route: 065
  7. FRAGMIN [Concomitant]
     Route: 065
  8. PANTOLOC [Concomitant]
     Route: 065
  9. LEVAQUIN [Concomitant]
     Route: 065

REACTIONS (1)
  - Confusional state [Unknown]
